FAERS Safety Report 6313148-1 (Version None)
Quarter: 2009Q3

REPORT INFORMATION
  Report Type: 
  Country: None (occurrence: None)
  Receive Date: 20090814
  Receipt Date: 20090814
  Transmission Date: 20100115
  Serious: Yes (Other)
  Sender: FDA-Public Use
  Company Number: None

PATIENT
  Sex: Female

DRUGS (1)
  1. NASACORT AQ [Suspect]
     Indication: RHINITIS ALLERGIC
     Dosage: 1 SPRAY ONCE DAILY NASAL
     Route: 045
     Dates: start: 20090609, end: 20090610

REACTIONS (4)
  - CHOKING [None]
  - DYSPNOEA [None]
  - PHARYNGEAL HYPOAESTHESIA [None]
  - PHARYNGEAL OEDEMA [None]
